FAERS Safety Report 4638023-X (Version None)
Quarter: 2005Q2

REPORT INFORMATION
  Report Type: 
  Country: None (occurrence: None)
  Receive Date: 20050415
  Receipt Date: 20050330
  Transmission Date: 20051028
  Serious: Yes (Death)
  Sender: FDA-Public Use
  Company Number: 213526

PATIENT
  Age: 40 Year
  Sex: Male
  Weight: 63 kg

DRUGS (5)
  1. AVASTIN [Suspect]
     Indication: COLON CANCER
     Dosage: 472.5 MG, Q3W, INTRAVENOUS
     Route: 042
     Dates: start: 20050214
  2. CAPECITABINE (CAPECITABINE) [Concomitant]
     Indication: COLON CANCER
     Dosage: 1800 MG, BID, ORAL
     Route: 048
     Dates: start: 20050214
  3. OXALIPLATIN (OXALIPLATIN) [Suspect]
     Indication: COLON CANCER
     Dosage: 179 MG, Q3W, INTRAVENOUS
     Route: 042
     Dates: start: 20050214
  4. RABEPRAZOLE SODIUM [Concomitant]
  5. SYNAP FORTE (ACETAMINOPHEN, CAFFEINE, DIPHENHYDRAMINE, PROPOXYPHENE NA [Concomitant]

REACTIONS (9)
  - ABDOMINAL PAIN [None]
  - ANOREXIA [None]
  - DECREASED APPETITE [None]
  - DIARRHOEA [None]
  - FLUID INTAKE REDUCED [None]
  - NAUSEA [None]
  - SUDDEN DEATH [None]
  - URINARY TRACT INFECTION [None]
  - VOMITING [None]
